FAERS Safety Report 9886948 (Version 3)
Quarter: 2014Q1

REPORT INFORMATION
  Report Type: Spontaneous
  Country: JP (occurrence: JP)
  Receive Date: 20140211
  Receipt Date: 20140228
  Transmission Date: 20141002
  Serious: Yes (Death, Hospitalization, Other)
  Sender: FDA-Public Use
  Company Number: JP-009507513-1402JPN000845

PATIENT
  Age: 80 Year
  Sex: Male
  Weight: 50 kg

DRUGS (9)
  1. JANUVIA TABLETS 50MG [Suspect]
     Indication: TYPE 2 DIABETES MELLITUS
     Dosage: 50 MG, QD
     Route: 048
     Dates: start: 20120828, end: 20140129
  2. RENIVACE [Suspect]
     Indication: HYPERTENSION
     Dosage: 5 MG, QD
     Route: 048
     Dates: start: 2009, end: 20140129
  3. CRESTOR [Suspect]
     Indication: HYPERLIPIDAEMIA
     Dosage: 5 MG, QD
     Route: 048
     Dates: start: 20120804
  4. CELECOX [Suspect]
     Dosage: 100 MG, BID
     Route: 048
     Dates: start: 201304
  5. BAYASPIRIN [Concomitant]
     Dosage: 100 MG, QD
     Route: 048
     Dates: start: 2009
  6. ARTIST [Concomitant]
     Dosage: 5 MG, QD
     Route: 048
  7. ITOROL [Concomitant]
     Dosage: 20 MG, BID
     Route: 048
     Dates: start: 201206
  8. PANALDINE [Concomitant]
     Dosage: 100 MG, BID
     Route: 048
     Dates: start: 2009
  9. PREDONINE [Concomitant]
     Dosage: 2 MG, QD
     Route: 048
     Dates: start: 201304

REACTIONS (6)
  - Interstitial lung disease [Fatal]
  - Loss of consciousness [Unknown]
  - Arthralgia [Unknown]
  - Arthralgia [Unknown]
  - Anxiety [Unknown]
  - Respiratory distress [Unknown]
